FAERS Safety Report 11432036 (Version 7)
Quarter: 2016Q4

REPORT INFORMATION
  Report Type: Spontaneous
  Country: US (occurrence: US)
  Receive Date: 20150828
  Receipt Date: 20161102
  Transmission Date: 20170206
  Serious: Yes (Other)
  Sender: FDA-Public Use
  Company Number: US-PFIZER INC-2015281990

PATIENT
  Age: 77 Year
  Sex: Male
  Weight: 77.56 kg

DRUGS (4)
  1. AMLODIPINE [Concomitant]
     Active Substance: AMLODIPINE BESYLATE
     Indication: BLOOD PRESSURE MEASUREMENT
     Dosage: 1.5 MG, UNK
     Dates: start: 201212
  2. INLYTA [Suspect]
     Active Substance: AXITINIB
     Indication: RENAL CELL CARCINOMA
     Dosage: 10 MG (2 TABLETS), 2X/DAY (EVERY 12 HOURS)
     Route: 048
     Dates: start: 201312, end: 20151221
  3. INLYTA [Suspect]
     Active Substance: AXITINIB
     Dosage: 5 MG (ONE TABLET), 2X/DAY (EVERY 12 HOURS)
     Route: 048
     Dates: start: 20160104, end: 20161004
  4. INLYTA [Suspect]
     Active Substance: AXITINIB
     Dosage: 10 MG (2 TABLETS), 2X/DAY (EVERY 12 HOURS)
     Route: 048
     Dates: start: 201312, end: 20151221

REACTIONS (9)
  - Activities of daily living impaired [Recovered/Resolved]
  - Hypertension [Recovering/Resolving]
  - Blood pressure abnormal [Recovered/Resolved]
  - Haemorrhoids [Recovered/Resolved]
  - Cellulitis [Recovered/Resolved]
  - Diarrhoea [Recovered/Resolved]
  - Dyspepsia [Unknown]
  - Abdominal discomfort [Recovering/Resolving]
  - Constipation [Recovered/Resolved]

NARRATIVE: CASE EVENT DATE: 201312
